FAERS Safety Report 18802091 (Version 2)
Quarter: 2021Q1

REPORT INFORMATION
  Report Type: Spontaneous
  Country: US (occurrence: US)
  Receive Date: 20210128
  Receipt Date: 20210302
  Transmission Date: 20210419
  Serious: No
  Sender: FDA-Public Use
  Company Number: US-DRREDDYS-USA/USA/21/0131226

PATIENT
  Age: 38 Year
  Sex: Male

DRUGS (1)
  1. FLUCONAZOLE. [Suspect]
     Active Substance: FLUCONAZOLE
     Indication: DISSEMINATED COCCIDIOIDOMYCOSIS

REACTIONS (3)
  - Cheilitis [Unknown]
  - Alopecia [Unknown]
  - Xerosis [Unknown]
